FAERS Safety Report 6156605-3 (Version None)
Quarter: 2009Q2

REPORT INFORMATION
  Report Type: 
  Country: None (occurrence: None)
  Receive Date: 20090416
  Receipt Date: 20090408
  Transmission Date: 20091009
  Serious: Yes (Other)
  Sender: FDA-Public Use
  Company Number: US-AMGEN-US342194

PATIENT
  Sex: Female

DRUGS (9)
  1. ENBREL [Suspect]
     Indication: PSORIASIS
     Route: 058
     Dates: start: 20070301, end: 20090407
  2. LISINOPRIL [Concomitant]
     Route: 048
  3. ZETIA [Concomitant]
     Route: 048
  4. LOVASTATIN [Concomitant]
     Route: 048
  5. ZOLOFT [Concomitant]
     Route: 048
  6. DOVONEX [Concomitant]
     Route: 061
  7. ALEVE [Concomitant]
     Route: 048
  8. PRILOSEC [Concomitant]
     Route: 048
  9. FERROUS GLUCONATE [Concomitant]
     Route: 048

REACTIONS (1)
  - RENAL MASS [None]
